FAERS Safety Report 6977149-2 (Version None)
Quarter: 2010Q3

REPORT INFORMATION
  Report Type: 
  Country: None (occurrence: None)
  Receive Date: 20100910
  Receipt Date: 20100902
  Transmission Date: 20110219
  Serious: Yes (Other)
  Sender: FDA-Public Use
  Company Number: IL-WATSON-2010-12068

PATIENT
  Sex: Female

DRUGS (1)
  1. FUROSEMIDE (WATSON LABORATORIES) [Suspect]
     Indication: WEIGHT DECREASED
     Dosage: 538+/- 174 MG/D
     Route: 048

REACTIONS (2)
  - DRUG ABUSE [None]
  - NEPHROCALCINOSIS [None]
